FAERS Safety Report 5414344-8 (Version None)
Quarter: 2007Q3

REPORT INFORMATION
  Report Type: 
  Country: None (occurrence: None)
  Receive Date: 20070814
  Receipt Date: 20070807
  Transmission Date: 20080115
  Serious: Yes (Life-Threatening)
  Sender: FDA-Public Use
  Company Number: FR-SHR-FR-2007-027639

PATIENT
  Age: 35 Year
  Sex: Female
  Weight: 48 kg

DRUGS (1)
  1. MIRENA [Suspect]
     Indication: CONTRACEPTION
     Dosage: 20 A?G/DAY, CONT
     Route: 015
     Dates: start: 20031220, end: 20070101

REACTIONS (3)
  - AMENORRHOEA [None]
  - PELVIC PAIN [None]
  - RUPTURED ECTOPIC PREGNANCY [None]
